FAERS Safety Report 11243224 (Version 1)
Quarter: 2015Q3

REPORT INFORMATION
  Report Type: Spontaneous
  Country: CA (occurrence: CA)
  Receive Date: 20150707
  Receipt Date: 20150707
  Transmission Date: 20151125
  Serious: Yes (Hospitalization)
  Sender: FDA-Public Use
  Company Number: CA-BIOGENIDEC-2015BI089502

PATIENT
  Age: 40 Year
  Sex: Female

DRUGS (2)
  1. TYSABRI [Concomitant]
     Active Substance: NATALIZUMAB
     Indication: RELAPSING-REMITTING MULTIPLE SCLEROSIS
     Route: 042
     Dates: start: 20120514
  2. FAMPYRA [Suspect]
     Active Substance: DALFAMPRIDINE
     Indication: GAIT DISTURBANCE
     Route: 048
     Dates: start: 20131112

REACTIONS (1)
  - Suicide attempt [Recovered/Resolved]

NARRATIVE: CASE EVENT DATE: 20150621
